FAERS Safety Report 13741566 (Version 1)
Quarter: 2017Q3

REPORT INFORMATION
  Report Type: Spontaneous
  Country: US (occurrence: US)
  Receive Date: 20170711
  Receipt Date: 20170711
  Transmission Date: 20171127
  Serious: Yes (Death, Hospitalization)
  Sender: FDA-Public Use
  Company Number: None

PATIENT
  Age: 72 Year
  Sex: Female
  Weight: 128.4 kg

DRUGS (3)
  1. DEXAMETHASONE. [Concomitant]
     Active Substance: DEXAMETHASONE
  2. ZOSYN [Concomitant]
     Active Substance: PIPERACILLIN SODIUM\TAZOBACTAM SODIUM
  3. MEMANTINE HYDROCHLORIDE. [Suspect]
     Active Substance: MEMANTINE HYDROCHLORIDE
     Dates: end: 20170613

REACTIONS (12)
  - Fall [None]
  - Thrombocytopenia [None]
  - Encephalitis [None]
  - Troponin increased [None]
  - Unresponsive to stimuli [None]
  - Urinary tract infection [None]
  - Bundle branch block right [None]
  - Mental status changes [None]
  - Arthralgia [None]
  - Sinus tachycardia [None]
  - Sepsis [None]
  - Leukopenia [None]

NARRATIVE: CASE EVENT DATE: 20170616
